FAERS Safety Report 7372520-1 (Version None)
Quarter: 2011Q1

REPORT INFORMATION
  Report Type: 
  Country: None (occurrence: None)
  Receive Date: 20110316
  Receipt Date: 20110307
  Transmission Date: 20110831
  Serious: Yes (Other)
  Sender: FDA-Public Use
  Company Number: 851860

PATIENT
  Age: 7 Year
  Sex: Female

DRUGS (3)
  1. BLEOMYCIN SULFATE [Suspect]
     Indication: PITUITARY TUMOUR
  2. ETOPOSIDE [Suspect]
     Indication: PITUITARY TUMOUR
  3. CISPLATIN [Suspect]
     Indication: NONGERMINOMATOUS GERM CELL TUMOUR OF THE CNS

REACTIONS (6)
  - POSTERIOR REVERSIBLE ENCEPHALOPATHY SYNDROME [None]
  - BRAIN NEOPLASM [None]
  - HEADACHE [None]
  - MENTAL IMPAIRMENT [None]
  - CONVULSION [None]
  - VISUAL IMPAIRMENT [None]
